FAERS Safety Report 8602461-0 (Version None)
Quarter: 2012Q3

REPORT INFORMATION
  Report Type: 
  Country: None (occurrence: None)
  Receive Date: 20120423
  Receipt Date: 20081104
  Transmission Date: 20120928
  Serious: Yes (Life-Threatening)
  Sender: FDA-Public Use
  Company Number: PHEH2008US09937

PATIENT
  Age: 57 Year
  Sex: Female

DRUGS (2)
  1. ZOMETA [Suspect]
     Indication: BREAST CANCER
  2. FEMARA [Suspect]
     Indication: BREAST CANCER

REACTIONS (2)
  - NEOPLASM MALIGNANT [None]
  - BREAST CANCER METASTATIC [None]
